FAERS Safety Report 6530898-2 (Version None)
Quarter: 2010Q1

REPORT INFORMATION
  Report Type: 
  Country: None (occurrence: None)
  Receive Date: 20100108
  Receipt Date: 20090521
  Transmission Date: 20100710
  Serious: No
  Sender: FDA-Public Use
  Company Number: A0785871A

PATIENT
  Sex: Male

DRUGS (1)
  1. LOVAZA [Suspect]

REACTIONS (1)
  - ERUCTATION [None]
